FAERS Safety Report 7059608-X (Version None)
Quarter: 2010Q4

REPORT INFORMATION
  Report Type: 
  Country: None (occurrence: None)
  Receive Date: 20101025
  Receipt Date: 20101014
  Transmission Date: 20110411
  Serious: Yes (Hospitalization, Other)
  Sender: FDA-Public Use
  Company Number: JP-JNJFOC-20100507109

PATIENT
  Age: 30 Year
  Sex: Female
  Weight: 47 kg

DRUGS (19)
  1. REMICADE [Suspect]
     Indication: PSORIATIC ARTHROPATHY
     Dosage: 3 INFUSIONS, UNSPECIFIED DATES
     Route: 042
  2. REMICADE [Suspect]
     Dosage: 3 INFUSIONS, UNSPECIFIED DATES
     Route: 042
  3. REMICADE [Suspect]
     Dosage: 3 INFUSIONS, UNSPECIFIED DATES
     Route: 042
  4. REMICADE [Suspect]
     Route: 042
  5. REMICADE [Suspect]
     Route: 042
  6. REMICADE [Suspect]
     Route: 042
  7. REMICADE [Suspect]
     Route: 042
  8. POLARAMINE [Concomitant]
     Indication: ADVERSE EVENT
     Route: 048
  9. INCREMIN IRON [Concomitant]
     Indication: IRON DEFICIENCY ANAEMIA
     Route: 048
  10. FOLIAMIN [Concomitant]
     Indication: FOLATE DEFICIENCY
     Route: 048
  11. SLOW FE [Concomitant]
     Indication: IRON DEFICIENCY ANAEMIA
     Route: 048
  12. RHEUMATREX [Concomitant]
     Indication: PSORIATIC ARTHROPATHY
     Route: 048
  13. PREDNISOLONE [Concomitant]
     Indication: PSORIATIC ARTHROPATHY
     Route: 048
  14. CYCLOSPORINE [Concomitant]
     Indication: PSORIATIC ARTHROPATHY
     Route: 048
  15. VOLTAREN [Concomitant]
     Indication: PSORIATIC ARTHROPATHY
     Route: 048
  16. AZULFIDINE [Concomitant]
     Indication: PSORIATIC ARTHROPATHY
     Route: 048
  17. MUCOSTA [Concomitant]
     Indication: PROPHYLAXIS
     Route: 048
  18. OMEPRAZON [Concomitant]
     Indication: PROPHYLAXIS
     Route: 048
  19. PRIMPERAN [Concomitant]
     Indication: ADVERSE EVENT
     Route: 048

REACTIONS (4)
  - DYSPNOEA [None]
  - ERYTHEMA [None]
  - INFUSION RELATED REACTION [None]
  - VENTRICULAR EXTRASYSTOLES [None]
